FAERS Safety Report 4721257-3 (Version None)
Quarter: 2005Q3

REPORT INFORMATION
  Report Type: 
  Country: None (occurrence: None)
  Receive Date: 20050720
  Receipt Date: 20050713
  Transmission Date: 20060218
  Serious: Yes (Other)
  Sender: FDA-Public Use
  Company Number: 2005-07-0662

PATIENT
  Age: 55 Year
  Sex: Male

DRUGS (1)
  1. CLARINEX [Suspect]
     Indication: HYPERSENSITIVITY
     Dates: start: 20040101, end: 20050101

REACTIONS (1)
  - ANGIONEUROTIC OEDEMA [None]
